FAERS Safety Report 12969532 (Version 2)
Quarter: 2016Q4

REPORT INFORMATION
  Report Type: Report from Study
  Country: US (occurrence: US)
  Receive Date: 20161123
  Receipt Date: 20161215
  Transmission Date: 20170207
  Serious: Yes (Hospitalization, Other)
  Sender: FDA-Public Use
  Company Number: US-SA-2016SA185398

PATIENT
  Age: 43 Year
  Sex: Female

DRUGS (3)
  1. SOLU-MEDROL [Concomitant]
     Active Substance: METHYLPREDNISOLONE SODIUM SUCCINATE
     Route: 042
     Dates: start: 201610
  2. LEMTRADA [Suspect]
     Active Substance: ALEMTUZUMAB
     Indication: MULTIPLE SCLEROSIS
     Route: 041
     Dates: start: 20161003, end: 20161006
  3. LEMTRADA [Suspect]
     Active Substance: ALEMTUZUMAB
     Indication: MULTIPLE SCLEROSIS
     Route: 041
     Dates: start: 20161010, end: 20161010

REACTIONS (27)
  - Cerebral disorder [Unknown]
  - Erythema [Recovered/Resolved]
  - Rash [Not Recovered/Not Resolved]
  - Skin lesion [Recovered/Resolved]
  - Headache [Recovered/Resolved]
  - Rhinorrhoea [Unknown]
  - Akinesia [Recovering/Resolving]
  - Red blood cells urine positive [Unknown]
  - Oropharyngeal pain [Unknown]
  - Pain [Not Recovered/Not Resolved]
  - Heart rate increased [Not Recovered/Not Resolved]
  - Urticaria [Unknown]
  - Pain [Unknown]
  - Pyrexia [Unknown]
  - Nausea [Not Recovered/Not Resolved]
  - Back pain [Unknown]
  - Blood test abnormal [Unknown]
  - Cough [Unknown]
  - Malaise [Not Recovered/Not Resolved]
  - Vomiting [Unknown]
  - Dyspnoea [Unknown]
  - Swelling [Unknown]
  - Pruritus generalised [Recovering/Resolving]
  - Herpes zoster [Not Recovered/Not Resolved]
  - Lymphocyte count decreased [Unknown]
  - Feeling abnormal [Recovering/Resolving]
  - Abdominal discomfort [Unknown]

NARRATIVE: CASE EVENT DATE: 2016
